FAERS Safety Report 25969102 (Version 1)
Quarter: 2025Q4

REPORT INFORMATION
  Report Type: Spontaneous
  Country: US (occurrence: US)
  Receive Date: 20251028
  Receipt Date: 20251028
  Transmission Date: 20260117
  Serious: Yes (Hospitalization, Other)
  Sender: IPSEN BIOPHARMACEUTICALS, INC.
  Company Number: US-IPSEN Group, Research and Development-2025-26197

PATIENT
  Age: 75 Year
  Sex: Male
  Weight: 76.30 kg

DRUGS (4)
  1. TAZVERIK [Suspect]
     Active Substance: TAZEMETOSTAT HYDROBROMIDE
     Indication: Follicular lymphoma
     Dosage: TWICE DAILY
     Route: 048
     Dates: start: 20250812
  2. TAZVERIK [Suspect]
     Active Substance: TAZEMETOSTAT HYDROBROMIDE
     Dosage: TWICE DAILY
     Route: 048
     Dates: start: 20250909
  3. MOSUNETUZUMAB [Suspect]
     Active Substance: MOSUNETUZUMAB
     Indication: Follicular lymphoma
     Dosage: SUBCUTANEOUS
     Route: 058
  4. MOSUNETUZUMAB [Suspect]
     Active Substance: MOSUNETUZUMAB
     Dosage: SUBCUTANEOUS
     Route: 058

REACTIONS (7)
  - Hypoxia [Unknown]
  - Dyspnoea [Unknown]
  - Asthenia [Unknown]
  - Dyspnoea [Unknown]
  - Pleural effusion [Unknown]
  - COVID-19 [Unknown]
  - Pneumonia bacterial [Recovering/Resolving]

NARRATIVE: CASE EVENT DATE: 20251016
